FAERS Safety Report 19510750 (Version 1)
Quarter: 2021Q3

REPORT INFORMATION
  Report Type: Spontaneous
  Country: US (occurrence: US)
  Receive Date: 20210709
  Receipt Date: 20210709
  Transmission Date: 20211014
  Serious: Yes (Life-Threatening, Disabling, Other)
  Sender: FDA-Public Use
  Company Number: None

PATIENT
  Age: 41 Year
  Sex: Male
  Weight: 103.5 kg

DRUGS (8)
  1. GINGER. [Concomitant]
     Active Substance: GINGER
  2. MONTELUKAST 10 MG [Suspect]
     Active Substance: MONTELUKAST SODIUM
     Indication: RHINITIS ALLERGIC
     Dosage: ?          QUANTITY:1 TABLET(S);?
     Route: 048
     Dates: start: 20191004, end: 20210421
  3. TURMERIC [Concomitant]
     Active Substance: HERBALS\TURMERIC
  4. FLUTICASONE. [Concomitant]
     Active Substance: FLUTICASONE
  5. VITAMIN D [Concomitant]
     Active Substance: VITAMIN D NOS
  6. VITAMIN C [Concomitant]
     Active Substance: ASCORBIC ACID
  7. BUSIPIRONE [Concomitant]
  8. ALPRAZOLAM. [Concomitant]
     Active Substance: ALPRAZOLAM

REACTIONS (13)
  - Nightmare [None]
  - Mood swings [None]
  - Anxiety [None]
  - Obsessive-compulsive disorder [None]
  - Depression [None]
  - Sleep deficit [None]
  - Sinusitis [None]
  - Suicidal ideation [None]
  - Negative thoughts [None]
  - Memory impairment [None]
  - Muscle twitching [None]
  - Confusional state [None]
  - Disturbance in attention [None]

NARRATIVE: CASE EVENT DATE: 20191011
